FAERS Safety Report 6003047-7 (Version None)
Quarter: 2008Q4

REPORT INFORMATION
  Report Type: 
  Country: None (occurrence: None)
  Receive Date: 20081215
  Receipt Date: 20081203
  Transmission Date: 20090506
  Serious: Yes (Hospitalization, Other)
  Sender: FDA-Public Use
  Company Number: US-PFIZER INC-2006109903

PATIENT
  Sex: Male
  Weight: 134.4 kg

DRUGS (11)
  1. INHALED HUMAN INSULIN [Suspect]
     Indication: TYPE 2 DIABETES MELLITUS
     Dosage: 17 IU, 1X/DAY
     Route: 055
     Dates: start: 20051128
  2. *INSULIN GLARGINE [Suspect]
     Indication: TYPE 2 DIABETES MELLITUS
     Dosage: 82 IU, 1X/DAY
     Route: 058
     Dates: start: 20051209
  3. METFORMIN HCL [Suspect]
     Indication: TYPE 2 DIABETES MELLITUS
     Dosage: 1000 MG, 2X/DAY
     Route: 048
     Dates: start: 20051125
  4. ALBUTEROL [Concomitant]
     Dosage: 1 PUFF,FREQUENCY: 5-6 TIMES PER WEEK
     Route: 055
     Dates: start: 20020101
  5. ACIPHEX [Concomitant]
     Dosage: 20 MG, 1X/DAY
     Route: 048
     Dates: start: 20050101
  6. FLONASE [Concomitant]
     Dosage: 2 GTT, 1X/DAY
     Route: 045
     Dates: start: 20000101
  7. XANAX [Concomitant]
     Dosage: AS NEEDED
     Route: 048
     Dates: start: 19910601
  8. ZOCOR [Concomitant]
     Dosage: 20 MG, 1X/DAY
     Route: 048
     Dates: start: 20000101
  9. GABAPENTIN [Concomitant]
     Dosage: 400 MG, 2X/DAY
     Route: 048
     Dates: start: 20060415
  10. FUROSEMIDE [Concomitant]
     Dosage: 40 MG, 1X/DAY
     Route: 048
     Dates: start: 20060627
  11. TAMSULOSIN HCL [Concomitant]
     Dosage: 0.4 MG, 1X/DAY
     Route: 048
     Dates: start: 20060627

REACTIONS (1)
  - ATRIOVENTRICULAR BLOCK [None]
